FAERS Safety Report 15967201 (Version 1)
Quarter: 2019Q1

REPORT INFORMATION
  Report Type: Spontaneous
  Country: US (occurrence: US)
  Receive Date: 20190215
  Receipt Date: 20190215
  Transmission Date: 20190418
  Serious: Yes (Hospitalization)
  Sender: FDA-Public Use
  Company Number: None

PATIENT
  Age: 76 Year
  Sex: Female

DRUGS (18)
  1. ALLOPURINOL. [Concomitant]
     Active Substance: ALLOPURINOL
  2. AMLODIPINE [Concomitant]
     Active Substance: AMLODIPINE BESYLATE
  3. TACROLIMUS CAPSULE [Suspect]
     Active Substance: TACROLIMUS
     Indication: RENAL TRANSPLANT
     Dosage: ?          OTHER FREQUENCY:3 QAM AND 2 QPM;?
     Route: 048
     Dates: start: 20180809
  4. BACTRIM [Concomitant]
     Active Substance: SULFAMETHOXAZOLE\TRIMETHOPRIM
  5. LEVOTHYROXINE. [Concomitant]
     Active Substance: LEVOTHYROXINE
  6. PREDNISONE. [Concomitant]
     Active Substance: PREDNISONE
  7. PROLIA [Concomitant]
     Active Substance: DENOSUMAB
  8. METOLAZONE. [Concomitant]
     Active Substance: METOLAZONE
  9. RANITIDINE. [Concomitant]
     Active Substance: RANITIDINE
  10. CALCITRIOL. [Concomitant]
     Active Substance: CALCITRIOL
  11. MAG-G [Concomitant]
     Active Substance: MAGNESIUM GLUCONATE
  12. ASPIRIN CHEW [Concomitant]
  13. ATORVASTATIN [Concomitant]
     Active Substance: ATORVASTATIN
  14. FERROUS SULFATE. [Concomitant]
     Active Substance: FERROUS SULFATE
  15. FUROSEMIDE. [Concomitant]
     Active Substance: FUROSEMIDE
  16. METOPROLOL SUCCINATE. [Concomitant]
     Active Substance: METOPROLOL SUCCINATE
  17. MYCOPHENOLIC [Concomitant]
     Active Substance: MYCOPHENOLIC ACID
  18. SEVELAMER [Concomitant]
     Active Substance: SEVELAMER

REACTIONS (1)
  - Pneumonia [None]

NARRATIVE: CASE EVENT DATE: 20190115
